FAERS Safety Report 25859397 (Version 2)
Quarter: 2025Q4

REPORT INFORMATION
  Report Type: Spontaneous
  Country: US (occurrence: US)
  Receive Date: 20250929
  Receipt Date: 20251009
  Transmission Date: 20260117
  Serious: No
  Sender: MYLAN
  Company Number: US-MYLANLABS-2025M1081234

PATIENT
  Age: 18 Year
  Sex: Male

DRUGS (2)
  1. SCOPOLAMINE TRANSDERMAL SYSTEM [Suspect]
     Active Substance: SCOPOLAMINE
     Indication: Prophylaxis of nausea and vomiting
     Dosage: 1 MILLIGRAM, Q3D (ONE PATCH EVERY 3 DAYS)
  2. SCOPOLAMINE TRANSDERMAL SYSTEM [Suspect]
     Active Substance: SCOPOLAMINE
     Indication: Chemotherapy

REACTIONS (2)
  - Nausea [Unknown]
  - Product adhesion issue [Unknown]

NARRATIVE: CASE EVENT DATE: 20250918
